FAERS Safety Report 4836884-2 (Version None)
Quarter: 2005Q4

REPORT INFORMATION
  Report Type: 
  Country: None (occurrence: None)
  Receive Date: 20051123
  Receipt Date: 20051004
  Transmission Date: 20060501
  Serious: Yes (Hospitalization, Other)
  Sender: FDA-Public Use
  Company Number: US-MERCK-0510USA02289

PATIENT
  Age: 78 Year
  Sex: Female
  Weight: 77 kg

DRUGS (16)
  1. VIOXX [Suspect]
     Indication: ARTHRITIS
     Route: 048
     Dates: start: 20000401, end: 20020201
  2. PREVACID [Concomitant]
     Route: 065
  3. PROZAC [Concomitant]
     Route: 065
  4. ARICEPT [Concomitant]
     Route: 065
  5. COREG [Concomitant]
     Route: 065
     Dates: end: 20031219
  6. PREMPRO [Concomitant]
     Route: 065
  7. VITAMIN E [Concomitant]
     Route: 065
  8. ASCORBIC ACID [Concomitant]
     Route: 065
  9. PLAVIX [Concomitant]
     Route: 048
  10. CLARITIN-D [Concomitant]
     Route: 065
  11. LIBRAX CAPSULES [Concomitant]
     Route: 065
  12. MIACALCIN [Concomitant]
     Route: 065
  13. DARVOCET-N 100 [Concomitant]
     Route: 065
  14. OS-CAL [Concomitant]
     Route: 065
  15. VITAMINS (UNSPECIFIED) [Concomitant]
     Route: 065
  16. ALBUTEROL [Concomitant]
     Route: 065

REACTIONS (28)
  - ASTHENIA [None]
  - BACTERIA URINE [None]
  - CARDIAC FAILURE CONGESTIVE [None]
  - CEREBROVASCULAR ACCIDENT [None]
  - DEMENTIA [None]
  - DEVICE MALFUNCTION [None]
  - DIABETES MELLITUS NON-INSULIN-DEPENDENT [None]
  - ENTEROCOCCAL INFECTION [None]
  - GASTRITIS [None]
  - GASTROENTERITIS [None]
  - HAEMATOCRIT DECREASED [None]
  - HAEMOGLOBIN DECREASED [None]
  - HERPETIC STOMATITIS [None]
  - HUMERUS FRACTURE [None]
  - KYPHOSIS [None]
  - LACUNAR INFARCTION [None]
  - LOBAR PNEUMONIA [None]
  - LUNG INFILTRATION [None]
  - MYOCARDIAL INFARCTION [None]
  - OBSTRUCTION GASTRIC [None]
  - OESOPHAGITIS [None]
  - PNEUMONIA [None]
  - PNEUMONIA ASPIRATION [None]
  - PULMONARY EMBOLISM [None]
  - SICK SINUS SYNDROME [None]
  - TRANSIENT ISCHAEMIC ATTACK [None]
  - UPPER GASTROINTESTINAL HAEMORRHAGE [None]
  - URINARY TRACT INFECTION [None]
